FAERS Safety Report 14170627 (Version 10)
Quarter: 2018Q1

REPORT INFORMATION
  Report Type: Spontaneous
  Country: US (occurrence: US)
  Receive Date: 20171108
  Receipt Date: 20180116
  Transmission Date: 20180508
  Serious: Yes (Hospitalization, Other)
  Sender: FDA-Public Use
  Company Number: US-GLAXOSMITHKLINE-US2017GSK170597

PATIENT
  Sex: Female

DRUGS (12)
  1. FLOLAN [Suspect]
     Active Substance: EPOPROSTENOL SODIUM
     Indication: PULMONARY ARTERIAL HYPERTENSION
  2. FLOLAN [Suspect]
     Active Substance: EPOPROSTENOL SODIUM
     Dosage: 73 DF, CO
     Route: 042
  3. FLOLAN [Suspect]
     Active Substance: EPOPROSTENOL SODIUM
     Dosage: 70 DF, CO
     Route: 042
  4. FLOLAN [Suspect]
     Active Substance: EPOPROSTENOL SODIUM
     Dosage: 78 NG/KG/MIN, CO
     Route: 042
  5. XARELTO [Concomitant]
     Active Substance: RIVAROXABAN
  6. FLOLAN [Suspect]
     Active Substance: EPOPROSTENOL SODIUM
     Indication: PULMONARY ARTERIAL HYPERTENSION
     Dosage: 70 NG/KG/MIN, CO
     Dates: start: 20150706
  7. OPSUMIT [Concomitant]
     Active Substance: MACITENTAN
  8. FLOLAN [Suspect]
     Active Substance: EPOPROSTENOL SODIUM
     Dosage: UNK
  9. FLOLAN [Suspect]
     Active Substance: EPOPROSTENOL SODIUM
     Dosage: 78 NG/KG/MIN, CO
     Route: 042
     Dates: start: 20171229
  10. ADCIRCA [Concomitant]
     Active Substance: TADALAFIL
  11. FLOLAN [Suspect]
     Active Substance: EPOPROSTENOL SODIUM
     Dosage: 78 DF, CO
     Route: 042
  12. FLOLAN [Suspect]
     Active Substance: EPOPROSTENOL SODIUM
     Dosage: 82 NG/KG/MIN, CO
     Route: 042

REACTIONS (8)
  - Haemorrhage [Unknown]
  - Chest pain [Unknown]
  - Cor pulmonale [Unknown]
  - Complication associated with device [Unknown]
  - Syncope [Unknown]
  - Condition aggravated [Unknown]
  - Drug administration error [Unknown]
  - Pulmonary hypertension [Unknown]
